FAERS Safety Report 9485627 (Version 1)
Quarter: 2013Q3

REPORT INFORMATION
  Report Type: Spontaneous
  Country: CA (occurrence: US)
  Receive Date: 20130829
  Receipt Date: 20130829
  Transmission Date: 20140515
  Serious: No
  Sender: FDA-Public Use
  Company Number: US-B.I. PHARMACEUTICALS,INC./RIDGEFIELD-2013-BI-26114BP

PATIENT
  Age: 50 Year
  Sex: Male
  Weight: 82 kg

DRUGS (1)
  1. COMBIVENT [Suspect]
     Indication: ASTHMA
     Dosage: STRENGTH: 20 MCG / 100 MCG; DAILY DOSE: 80 MCG/400 MCG
     Route: 055
     Dates: start: 201308

REACTIONS (3)
  - Drug ineffective [Recovered/Resolved]
  - Product quality issue [Unknown]
  - Product quality issue [Recovered/Resolved]
